FAERS Safety Report 20795418 (Version 4)
Quarter: 2022Q2

REPORT INFORMATION
  Report Type: Spontaneous
  Country: US (occurrence: US)
  Receive Date: 20220506
  Receipt Date: 20220602
  Transmission Date: 20220720
  Serious: Yes (Hospitalization, Other)
  Sender: FDA-Public Use
  Company Number: US-PFIZER INC-202101300987

PATIENT
  Age: 84 Year
  Sex: Male
  Weight: 71 kg

DRUGS (1)
  1. VORICONAZOLE [Suspect]
     Active Substance: VORICONAZOLE
     Dosage: 200 MG, 2X/DAY
     Route: 048

REACTIONS (5)
  - Fall [Unknown]
  - Hip fracture [Unknown]
  - Pneumonia [Unknown]
  - Clavicle fracture [Unknown]
  - Sepsis [Unknown]

NARRATIVE: CASE EVENT DATE: 20211201
